FAERS Safety Report 8222489-2 (Version None)
Quarter: 2012Q1

REPORT INFORMATION
  Report Type: 
  Country: None (occurrence: None)
  Receive Date: 20120320
  Receipt Date: 20120305
  Transmission Date: 20120608
  Serious: Yes (Other)
  Sender: FDA-Public Use
  Company Number: PHHY2012JP020453

PATIENT

DRUGS (4)
  1. NEORAL [Suspect]
     Indication: STEM CELL TRANSPLANT
     Dates: end: 20050201
  2. MYCOPHENOLATE MOFETIL [Concomitant]
     Indication: STEM CELL TRANSPLANT
     Route: 048
  3. PREDNISOLONE [Concomitant]
     Indication: STEM CELL TRANSPLANT
  4. NEORAL [Suspect]
     Dates: start: 20070401, end: 20070101

REACTIONS (2)
  - LUNG DISORDER [None]
  - CHRONIC LYMPHOCYTIC LEUKAEMIA [None]
